FAERS Safety Report 11241059 (Version 2)
Quarter: 2015Q3

REPORT INFORMATION
  Report Type: Spontaneous
  Country: JP (occurrence: JP)
  Receive Date: 20150706
  Receipt Date: 20150724
  Transmission Date: 20151125
  Serious: Yes (Other)
  Sender: FDA-Public Use
  Company Number: JP-GLAXOSMITHKLINE-JP2015JPN093214

PATIENT
  Age: 68 Year
  Sex: Female
  Weight: 38 kg

DRUGS (1)
  1. SAMITREL [Suspect]
     Active Substance: ATOVAQUONE
     Indication: PNEUMOCYSTIS JIROVECII PNEUMONIA
     Dosage: UNK UNK, U
     Route: 048
     Dates: start: 20150626

REACTIONS (1)
  - Renal impairment [Not Recovered/Not Resolved]
